FAERS Safety Report 14843767 (Version 1)
Quarter: 2018Q2

REPORT INFORMATION
  Report Type: Spontaneous
  Country: FR (occurrence: FR)
  Receive Date: 20180503
  Receipt Date: 20180503
  Transmission Date: 20180711
  Serious: Yes (Other)
  Sender: FDA-Public Use
  Company Number: FR-MYLANLABS-2018M1027819

PATIENT
  Age: 66 Year
  Sex: Male

DRUGS (1)
  1. MYLAN-IRBESARTAN [Suspect]
     Active Substance: IRBESARTAN
     Indication: PRODUCT USED FOR UNKNOWN INDICATION
     Dosage: UNK

REACTIONS (4)
  - Varices oesophageal [Unknown]
  - Fatigue [Unknown]
  - Portal hypertension [Unknown]
  - Thrombocytosis [Unknown]
